FAERS Safety Report 19500527 (Version 1)
Quarter: 2021Q3

REPORT INFORMATION
  Report Type: Spontaneous
  Country: FR (occurrence: FR)
  Receive Date: 20210706
  Receipt Date: 20210706
  Transmission Date: 20211014
  Serious: Yes (Other)
  Sender: FDA-Public Use
  Company Number: FR-TITAN PHARMACEUTICALS-2021TAN00155

PATIENT
  Age: 35 Year
  Sex: Female

DRUGS (2)
  1. COCAINE [Suspect]
     Active Substance: COCAINE
     Route: 065
  2. BUPRENORPHINE. [Suspect]
     Active Substance: BUPRENORPHINE
     Indication: SUBSTANCE ABUSER
     Dosage: 8 MG, 1X/DAY
     Route: 065

REACTIONS (3)
  - Overdose [Recovered/Resolved]
  - Placental disorder [Recovered/Resolved]
  - Exposure during pregnancy [Recovered/Resolved]
